FAERS Safety Report 9343830 (Version 2)
Quarter: 2013Q3

REPORT INFORMATION
  Report Type: Spontaneous
  Country: US (occurrence: MX)
  Receive Date: 20130612
  Receipt Date: 20130709
  Transmission Date: 20140515
  Serious: No
  Sender: FDA-Public Use
  Company Number: US-009507513-1306USA004668

PATIENT
  Sex: Female

DRUGS (1)
  1. BLINDED THERAPY [Suspect]
     Dosage: 1 DF, UNK
     Route: 030
     Dates: start: 2011

REACTIONS (5)
  - Device deployment issue [Unknown]
  - Incorrect route of drug administration [Unknown]
  - Wrong technique in drug usage process [Unknown]
  - Product quality issue [Unknown]
  - Medical device complication [Unknown]
